FAERS Safety Report 4525117-2 (Version None)
Quarter: 2004Q4

REPORT INFORMATION
  Report Type: 
  Country: None (occurrence: None)
  Receive Date: 20041117
  Receipt Date: 20031222
  Transmission Date: 20050328
  Serious: Yes (Other)
  Sender: FDA-Public Use
  Company Number: C2003-3308.01

PATIENT
  Age: 56 Year
  Sex: Male
  Weight: 83.9154 kg

DRUGS (4)
  1. CLOZAPINE [Suspect]
     Indication: SCHIZOPHRENIA
     Dosage: 300MG Q AM AND 400MG Q HS, ORAL
     Route: 048
  2. INSULIN [Concomitant]
  3. METOPROLOL SUCCINATE [Concomitant]
  4. OTHER UNKNOWN MEDICATIONS [Concomitant]

REACTIONS (1)
  - DRUG EFFECT DECREASED [None]
